FAERS Safety Report 6552390-1 (Version None)
Quarter: 2010Q1

REPORT INFORMATION
  Report Type: 
  Country: None (occurrence: None)
  Receive Date: 20100126
  Receipt Date: 20100113
  Transmission Date: 20100710
  Serious: Yes (Other)
  Sender: FDA-Public Use
  Company Number: CA-PFIZER INC-2009315405

PATIENT
  Age: 10 Year
  Sex: Male

DRUGS (3)
  1. ZELDOX [Suspect]
     Indication: ATTENTION DEFICIT/HYPERACTIVITY DISORDER
     Dosage: 20 MG, 1X/DAY AT SUPPER
     Route: 048
     Dates: start: 20090723
  2. ADDERALL 10 [Interacting]
     Indication: ATTENTION DEFICIT/HYPERACTIVITY DISORDER
     Dosage: 30 MG, 1X/DAY IN THE MORNING
     Dates: start: 20091030
  3. ADDERALL 10 [Interacting]
     Dosage: 25 MG, UNK

REACTIONS (3)
  - DRUG INTERACTION [None]
  - PHOBIA [None]
  - TIC [None]
